FAERS Safety Report 8837271 (Version 1)
Quarter: 2012Q4

REPORT INFORMATION
  Report Type: Spontaneous
  Country: US (occurrence: None)
  Receive Date: 20121011
  Receipt Date: 20121011
  Transmission Date: 20130627
  Serious: Yes (Hospitalization)
  Sender: FDA-Public Use
  Company Number: None

PATIENT
  Weight: 98.3 kg

DRUGS (11)
  1. AVASTIN [Suspect]
     Indication: GASTROINTESTINAL TRACT CANCER NOS
     Dosage: 5mg/kg IV Q2WEEKS
     Route: 042
     Dates: start: 20120816
  2. AVASTIN [Suspect]
     Indication: GASTROINTESTINAL TRACT CANCER NOS
     Dates: start: 20120830
  3. AVASTIN [Suspect]
     Indication: GASTROINTESTINAL TRACT CANCER NOS
     Dates: start: 20120913
  4. AVASTIN [Suspect]
     Indication: GASTROINTESTINAL TRACT CANCER NOS
     Dates: start: 20120927
  5. FLUOROURACIL\LEUCOVORIN CALCIUM [Suspect]
     Route: 042
     Dates: start: 20120816
  6. FLUOROURACIL\LEUCOVORIN CALCIUM [Suspect]
     Dates: start: 20120830
  7. FLUOROURACIL\LEUCOVORIN CALCIUM [Suspect]
     Dates: start: 20120913
  8. FLUOROURACIL\LEUCOVORIN CALCIUM [Suspect]
     Dates: start: 20120927
  9. OXALIPLATIN [Suspect]
  10. LEUCOVORIN [Suspect]
  11. THIOURACIL [Suspect]

REACTIONS (3)
  - Abdominal pain [None]
  - Diarrhoea [None]
  - Colitis [None]
